FAERS Safety Report 9185776 (Version 1)
Quarter: 2013Q1

REPORT INFORMATION
  Report Type: Spontaneous
  Country: GB (occurrence: None)
  Receive Date: 20130321
  Receipt Date: 20130321
  Transmission Date: 20140127
  Serious: Yes (Other)
  Sender: FDA-Public Use
  Company Number: CL-479-2013

PATIENT
  Sex: Female

DRUGS (1)
  1. FLUCONAZOLE [Suspect]
     Indication: VULVOVAGINAL CANDIDIASIS
     Route: 048

REACTIONS (2)
  - Drug eruption [None]
  - Skin hyperpigmentation [None]
